FAERS Safety Report 13138513 (Version 6)
Quarter: 2017Q2

REPORT INFORMATION
  Report Type: Spontaneous
  Country: US (occurrence: US)
  Receive Date: 20170123
  Receipt Date: 20170428
  Transmission Date: 20170830
  Serious: Yes (Hospitalization, Congenital Anomaly, Other)
  Sender: FDA-Public Use
  Company Number: PHEH2017US002004

PATIENT
  Sex: Female

DRUGS (1)
  1. ZOFRAN [Suspect]
     Active Substance: ONDANSETRON HYDROCHLORIDE
     Indication: FOETAL EXPOSURE DURING PREGNANCY
     Dosage: MOTHER^S DOSE: 4 MG, PRN
     Route: 064

REACTIONS (39)
  - Heart disease congenital [Unknown]
  - Thrombosis [Unknown]
  - Dysmorphism [Unknown]
  - Hypoplastic right heart syndrome [Unknown]
  - Ventricular hypoplasia [Unknown]
  - Neonatal infection [Unknown]
  - Acute kidney injury [Recovering/Resolving]
  - Pleural effusion [Unknown]
  - Left ventricular dysfunction [Unknown]
  - Injury [Unknown]
  - Hyperphosphataemia [Unknown]
  - Congenital tricuspid valve atresia [Unknown]
  - Chylothorax [Recovered/Resolved]
  - Atelectasis [Unknown]
  - Dehydration [Unknown]
  - Ascites [Unknown]
  - Gastroenteritis [Unknown]
  - Oedema [Unknown]
  - Skull malformation [Unknown]
  - Congenital jaw malformation [Unknown]
  - Cardiac ventricular disorder [Unknown]
  - Fever neonatal [Unknown]
  - Congenital tricuspid valve stenosis [Unknown]
  - Cyanosis neonatal [Unknown]
  - Neonatal respiratory distress syndrome [Unknown]
  - Hypoxia [Recovering/Resolving]
  - Univentricular heart [Unknown]
  - Bacterial tracheitis [Unknown]
  - Respiratory failure [Unknown]
  - Foetal exposure during pregnancy [Unknown]
  - Dyspnoea [Unknown]
  - Ventricular septal defect [Unknown]
  - Atrial septal defect [Unknown]
  - Patent ductus arteriosus [Unknown]
  - Pupillary deformity [Unknown]
  - Neutropenia neonatal [Unknown]
  - Neonatal tachypnoea [Unknown]
  - Cardiac failure high output [Unknown]
  - Vomiting [Unknown]
